FAERS Safety Report 21049963 (Version 2)
Quarter: 2022Q3

REPORT INFORMATION
  Report Type: Spontaneous
  Country: None (occurrence: US)
  Receive Date: 20220706
  Receipt Date: 20220720
  Transmission Date: 20221027
  Serious: Yes (Death)
  Sender: FDA-Public Use
  Company Number: US-Mission Pharmacal Company-2130599

PATIENT
  Age: 83 Year
  Sex: Female

DRUGS (13)
  1. THIOLA [Suspect]
     Active Substance: TIOPRONIN
     Indication: Cystinuria
     Route: 048
     Dates: start: 20150725, end: 20220627
  2. METOPROLOL TARTRATE [Concomitant]
     Active Substance: METOPROLOL TARTRATE
     Dates: end: 20220627
  3. SYNTHROID [Concomitant]
     Active Substance: LEVOTHYROXINE SODIUM
     Dates: end: 20220627
  4. LIPITOR [Concomitant]
     Active Substance: ATORVASTATIN CALCIUM
     Dates: end: 20220627
  5. CALCITRIOL [Concomitant]
     Active Substance: CALCITRIOL
     Dates: end: 20220627
  6. CARDURA [Concomitant]
     Active Substance: DOXAZOSIN MESYLATE
     Dates: end: 20220627
  7. ASPIRIN [Concomitant]
     Active Substance: ASPIRIN
     Dates: end: 20220627
  8. JANUVIA [Concomitant]
     Active Substance: SITAGLIPTIN PHOSPHATE
     Dates: end: 20220627
  9. FERROUS SULFATE [Concomitant]
     Active Substance: FERROUS SULFATE
     Dates: end: 20220627
  10. ALLOPURINOL [Concomitant]
     Active Substance: ALLOPURINOL
     Dates: end: 20220627
  11. VITAMIN D [Concomitant]
     Active Substance: VITAMIN D NOS
     Dates: end: 20220627
  12. MINERALS\VITAMINS [Concomitant]
     Active Substance: MINERALS\VITAMINS
     Dates: end: 20220627
  13. TIKOSYN [Concomitant]
     Active Substance: DOFETILIDE
     Dates: end: 20220627

REACTIONS (1)
  - Death [Fatal]
